FAERS Safety Report 13167405 (Version 1)
Quarter: 2017Q1

REPORT INFORMATION
  Report Type: Spontaneous
  Country: US (occurrence: US)
  Receive Date: 20170131
  Receipt Date: 20170131
  Transmission Date: 20170428
  Serious: Yes (Other)
  Sender: FDA-Public Use
  Company Number: None

PATIENT
  Age: 52 Year
  Sex: Female

DRUGS (2)
  1. PREDNISONE 10MG CADISTA [Suspect]
     Active Substance: PREDNISONE
     Indication: LOWER RESPIRATORY TRACT INFECTION
     Dosage: DOSE - 4 X 3D, 3X2D, 2 X 2D, 1 X 2D
     Route: 048
     Dates: start: 20170112
  2. AZITHROMYCIN 250G TEVA [Suspect]
     Active Substance: AZITHROMYCIN
     Indication: LOWER RESPIRATORY TRACT INFECTION
     Dosage: DOSE - 2 DAY 1, 1 DAILY FOR 4 DAYS
     Route: 048
     Dates: start: 20170112

REACTIONS (1)
  - Atrial fibrillation [None]

NARRATIVE: CASE EVENT DATE: 20170113
